FAERS Safety Report 23765309 (Version 2)
Quarter: 2024Q3

REPORT INFORMATION
  Report Type: Report from Study
  Country: CH (occurrence: CH)
  Receive Date: 20240420
  Receipt Date: 20240809
  Transmission Date: 20241017
  Serious: Yes (Other)
  Sender: TEVA
  Company Number: CH-TEVA-VS-3181578

PATIENT
  Age: 42 Year
  Sex: Female

DRUGS (1)
  1. AJOVY [Suspect]
     Active Substance: FREMANEZUMAB-VFRM
     Indication: Migraine
     Route: 058
     Dates: start: 20240403, end: 20240403

REACTIONS (5)
  - Face oedema [Recovered/Resolved]
  - Lip oedema [Recovered/Resolved]
  - Infection [Recovered/Resolved]
  - Oral herpes [Recovered/Resolved]
  - Lip blister [Recovered/Resolved]

NARRATIVE: CASE EVENT DATE: 20240405
